FAERS Safety Report 4451096-2 (Version None)
Quarter: 2004Q3

REPORT INFORMATION
  Report Type: 
  Country: None (occurrence: None)
  Receive Date: 20040913
  Receipt Date: 20040616
  Transmission Date: 20050211
  Serious: No
  Sender: FDA-Public Use
  Company Number: 2004-BP-04782BP(0)

PATIENT
  Age: 66 Year
  Sex: Female

DRUGS (4)
  1. SPIRIVA [Suspect]
     Indication: CHRONIC OBSTRUCTIVE AIRWAYS DISEASE
     Dosage: 18 MCG (18 MCG), IH
     Dates: start: 20040610, end: 20040612
  2. DUONEB [Suspect]
     Dosage: 5 MG (QID), IH
     Dates: start: 20030101
  3. XOPENEX [Suspect]
     Dosage: IH
     Dates: start: 20040612, end: 20040612
  4. PREDNISONE [Concomitant]

REACTIONS (2)
  - DYSPNOEA [None]
  - THROAT TIGHTNESS [None]
